FAERS Safety Report 5167631-5 (Version None)
Quarter: 2006Q4

REPORT INFORMATION
  Report Type: 
  Country: None (occurrence: None)
  Receive Date: 20061204
  Receipt Date: 20061204
  Transmission Date: 20070319
  Serious: Yes (Other)
  Sender: FDA-Public Use
  Company Number: None

PATIENT
  Age: 62 Year
  Sex: Male
  Weight: 88.4514 kg

DRUGS (2)
  1. CRESTOR [Suspect]
     Indication: BLOOD CHOLESTEROL
     Dates: start: 20060702, end: 20061012
  2. LIPITOR [Suspect]
     Indication: BLOOD CHOLESTEROL
     Dates: start: 20050312, end: 20060605

REACTIONS (3)
  - FATIGUE [None]
  - FEELING ABNORMAL [None]
  - MENTAL DISORDER [None]
